FAERS Safety Report 9721424 (Version 2)
Quarter: 2014Q1

REPORT INFORMATION
  Report Type: Spontaneous
  Country: US (occurrence: US)
  Receive Date: 20131129
  Receipt Date: 20140117
  Transmission Date: 20141002
  Serious: Yes (Death, Life-Threatening)
  Sender: FDA-Public Use
  Company Number: US-ASTRAZENECA-2013SE87260

PATIENT
  Age: 88 Year
  Sex: Male
  Weight: 59 kg

DRUGS (8)
  1. SEROQUEL [Suspect]
     Indication: AGGRESSION
     Route: 048
     Dates: start: 201211, end: 201302
  2. UNSPECIFIED MEDICATIONS [Concomitant]
     Indication: CARDIAC DISORDER
  3. UNSPECIFIED MEDICATIONS [Concomitant]
     Indication: BLOOD PRESSURE ABNORMAL
  4. UNSPECIFIED MEDICATIONS [Concomitant]
     Indication: ANTIDEPRESSANT THERAPY
  5. UNSPECIFIED MEDICATIONS [Concomitant]
     Indication: DIABETES MELLITUS
  6. MORPHINE [Concomitant]
  7. DIVALPROEX [Concomitant]
  8. MIRTAZAPINE [Concomitant]

REACTIONS (11)
  - Renal failure [Unknown]
  - Leukaemia [Fatal]
  - Death [Fatal]
  - Insomnia [Unknown]
  - Weight decreased [Unknown]
  - Local swelling [Unknown]
  - Fall [Unknown]
  - Decreased appetite [Unknown]
  - Fatigue [Unknown]
  - Psychomotor hyperactivity [Unknown]
  - Intentional drug misuse [Unknown]
